FAERS Safety Report 9950902 (Version 1)
Quarter: 2014Q1

REPORT INFORMATION
  Report Type: Report from Study
  Country: US (occurrence: US)
  Receive Date: 20140304
  Receipt Date: 20140304
  Transmission Date: 20141002
  Serious: No
  Sender: FDA-Public Use
  Company Number: US-ABBVIE-13P-163-1067056-00

PATIENT
  Age: 45 Year
  Sex: Female

DRUGS (8)
  1. HUMIRA [Suspect]
     Indication: COLITIS ULCERATIVE
     Dates: start: 201211
  2. LIALDA [Concomitant]
     Indication: COLITIS
     Dosage: 4 TABLETS DAILY
  3. ZYRTEC [Concomitant]
     Indication: ALLERGIC SINUSITIS
  4. FLUTICASONE [Concomitant]
     Indication: HYPERSENSITIVITY
     Dosage: EACH NOSTRIL AT BEDTIME
  5. GUAIFENESIN [Concomitant]
     Indication: PRODUCT USED FOR UNKNOWN INDICATION
  6. MUCINEX [Concomitant]
     Indication: HYPERSENSITIVITY
  7. TYLENOL [Concomitant]
     Indication: PAIN
  8. JUNEL FE [Concomitant]
     Indication: CONTRACEPTION

REACTIONS (3)
  - Abdominal distension [Recovered/Resolved]
  - Urinary tract infection [Recovered/Resolved]
  - Inappropriate schedule of drug administration [Unknown]
